FAERS Safety Report 8094653-7 (Version None)
Quarter: 2012Q1

REPORT INFORMATION
  Report Type: 
  Country: None (occurrence: None)
  Receive Date: 20120131
  Receipt Date: 20111227
  Transmission Date: 20120608
  Serious: No
  Sender: FDA-Public Use
  Company Number: US-ABBOTT-11P-163-0886890-00

PATIENT
  Sex: Female
  Weight: 62.198 kg

DRUGS (5)
  1. CREON [Suspect]
     Indication: DYSPEPSIA
     Dosage: FORM STRENGTH 12000UNIT CAPSULES
     Dates: start: 20100101, end: 20111206
  2. CREON [Suspect]
     Indication: IRRITABLE BOWEL SYNDROME
  3. CREON [Suspect]
     Indication: FLATULENCE
  4. SLEEP MEDICATIONS [Concomitant]
     Indication: PRODUCT USED FOR UNKNOWN INDICATION
  5. RELAXANTS [Concomitant]
     Indication: PRODUCT USED FOR UNKNOWN INDICATION

REACTIONS (2)
  - INSOMNIA [None]
  - HEADACHE [None]
